FAERS Safety Report 22609917 (Version 1)
Quarter: 2023Q2

REPORT INFORMATION
  Report Type: Spontaneous
  Country: CN (occurrence: None)
  Receive Date: 20230616
  Receipt Date: 20230616
  Transmission Date: 20230722
  Serious: Yes (Hospitalization, Other)
  Sender: FDA-Public Use
  Company Number: 2023A135208

PATIENT
  Age: 19981 Day
  Sex: Female
  Weight: 51.5 kg

DRUGS (3)
  1. OLAPARIB [Suspect]
     Active Substance: OLAPARIB
     Indication: Neoplasm
     Route: 048
     Dates: start: 20230315, end: 20230519
  2. BEVACIZUMAB [Suspect]
     Active Substance: BEVACIZUMAB
     Indication: Neoplasm
     Route: 041
     Dates: start: 20230310, end: 20230512
  3. SODIUM CHLORIDE [Concomitant]
     Active Substance: SODIUM CHLORIDE
     Route: 041
     Dates: start: 20230310, end: 20230512

REACTIONS (5)
  - Pyrexia [Recovering/Resolving]
  - Platelet disorder [Recovering/Resolving]
  - Anaemia [Recovering/Resolving]
  - Agranulocytosis [Recovering/Resolving]
  - Fatigue [Recovering/Resolving]

NARRATIVE: CASE EVENT DATE: 20230513
